FAERS Safety Report 5324529-7 (Version None)
Quarter: 2007Q2

REPORT INFORMATION
  Report Type: 
  Country: None (occurrence: None)
  Receive Date: 20070508
  Receipt Date: 20070423
  Transmission Date: 20071010
  Serious: Yes (Hospitalization, Other)
  Sender: FDA-Public Use
  Company Number: 2006JP004841

PATIENT
  Age: 34 Year
  Sex: Female
  Weight: 45 kg

DRUGS (10)
  1. NICARDIPINE (NICARDIPINE) FORMULATION UNKNOWN, UNKNOWN [Suspect]
     Indication: HYPERTENSION
     Dosage: ORAL
     Route: 048
  2. RAPAMUNE [Suspect]
     Indication: PROPHYLAXIS AGAINST TRANSPLANT REJECTION
     Dosage: SEE IMAGE
     Route: 048
     Dates: start: 20021201
  3. RAPAMUNE [Suspect]
     Indication: PROPHYLAXIS AGAINST TRANSPLANT REJECTION
     Dosage: SEE IMAGE
     Route: 048
     Dates: start: 20030421
  4. PROGRAF [Suspect]
     Dates: start: 20021201
  5. TENORMIN [Concomitant]
  6. PREDNISOLONE [Concomitant]
  7. OMEPRAZOLE [Concomitant]
  8. FERROUS FUMARATE [Concomitant]
  9. FUNGIZONE [Concomitant]
  10. IRBESARTAN [Concomitant]

REACTIONS (12)
  - ASTHENIA [None]
  - BODY TEMPERATURE INCREASED [None]
  - CARDIOMEGALY [None]
  - COUGH [None]
  - DRUG INTERACTION [None]
  - EAR, NOSE AND THROAT EXAMINATION ABNORMAL [None]
  - IMMUNOSUPPRESSANT DRUG LEVEL INCREASED [None]
  - LUNG DISORDER [None]
  - MYALGIA [None]
  - OVERDOSE [None]
  - OXYGEN SATURATION DECREASED [None]
  - TACHYPNOEA [None]
